FAERS Safety Report 4382581-X (Version None)
Quarter: 2004Q2

REPORT INFORMATION
  Report Type: 
  Country: None (occurrence: None)
  Receive Date: 20040622
  Receipt Date: 20040610
  Transmission Date: 20050107
  Serious: Yes (Other)
  Sender: FDA-Public Use
  Company Number: FR-ROCHE-370700

PATIENT
  Sex: Male

DRUGS (7)
  1. RIBAVIRIN [Suspect]
     Dosage: TREATMENT STOPPED BETWEEN JAN AND MAR 2000.
     Route: 065
     Dates: start: 19990815, end: 20000315
  2. INTERFERON ALFA [Concomitant]
     Dosage: TREATMENT STOPPED BETWEEN JAN AND MAR 2000. RE-INTRODUCTION APPROXIMATELY 2 MONTHS LATER.
     Dates: start: 19990815, end: 20000315
  3. ZIDOVUDINE [Concomitant]
     Indication: HIV INFECTION
     Dosage: TREATMENT WAS REINITIATED BETWEEN JAN 2000 - MAR 2000.
     Dates: start: 19960515, end: 19990915
  4. DIDANOSINE [Concomitant]
     Indication: HIV INFECTION
     Dosage: TREATMENT STOPPED BETWEEN JAN TO MAR 2000.
     Dates: start: 19960515, end: 20000315
  5. STAVUDINE [Concomitant]
     Indication: HIV INFECTION
     Dosage: BETWEEN JAN AND MAR 2000, TREATMENT WAS STOPPED.
     Dates: start: 19990915, end: 20000315
  6. SAQUINAVIR [Concomitant]
     Indication: HIV INFECTION
     Dates: start: 19960515
  7. LAMIVUDINE [Concomitant]
     Indication: HIV INFECTION
     Dosage: TREATMENT STARTED BETWEEN JAN 2000 AND MAR 2000.
     Route: 065
     Dates: start: 20000115

REACTIONS (8)
  - ASCITES [None]
  - BLOOD ALKALINE PHOSPHATASE INCREASED [None]
  - DIABETES MELLITUS [None]
  - GAMMA-GLUTAMYLTRANSFERASE INCREASED [None]
  - MITOCHONDRIAL TOXICITY [None]
  - MULTI-ORGAN DISORDER [None]
  - PANCREATITIS [None]
  - WEIGHT DECREASED [None]
